FAERS Safety Report 25589060 (Version 1)
Quarter: 2025Q3

REPORT INFORMATION
  Report Type: Spontaneous
  Country: US (occurrence: US)
  Receive Date: 20250722
  Receipt Date: 20250722
  Transmission Date: 20251021
  Serious: Yes (Other)
  Sender: ALKEM
  Company Number: US-ALKEM LABORATORIES LIMITED-US-ALKEM-2025-07155

PATIENT
  Age: 6 Decade
  Sex: Male

DRUGS (15)
  1. EVEROLIMUS [Suspect]
     Active Substance: EVEROLIMUS
     Indication: Renal cell carcinoma
     Route: 065
  2. EVEROLIMUS [Suspect]
     Active Substance: EVEROLIMUS
     Indication: Rhabdoid tumour
  3. OLANZAPINE [Suspect]
     Active Substance: OLANZAPINE
     Indication: Insomnia
     Dosage: 5 MILLIGRAM, TID (EVERY 8 HOURS), AS NEEDED
     Route: 065
  4. OLANZAPINE [Suspect]
     Active Substance: OLANZAPINE
     Indication: Anxiety
     Dosage: 2.5 MILLIGRAM, QD AS NEEDED DURING DAY TIME
     Route: 065
  5. OLANZAPINE [Suspect]
     Active Substance: OLANZAPINE
     Route: 065
  6. OXYCODONE HYDROCHLORIDE [Suspect]
     Active Substance: OXYCODONE HYDROCHLORIDE
     Indication: Abdominal pain lower
     Dosage: 20 MILLIGRAM, BID (EVERY 12 HOURS) (EXTENDED-RELEASE)
     Route: 065
  7. OXYCODONE HYDROCHLORIDE [Suspect]
     Active Substance: OXYCODONE HYDROCHLORIDE
     Route: 065
  8. CABOZANTINIB [Suspect]
     Active Substance: CABOZANTINIB
     Indication: Renal cell carcinoma
     Route: 065
  9. CABOZANTINIB [Suspect]
     Active Substance: CABOZANTINIB
     Indication: Rhabdoid tumour
  10. LENVATINIB [Suspect]
     Active Substance: LENVATINIB
     Indication: Renal cell carcinoma
     Route: 065
  11. LENVATINIB [Suspect]
     Active Substance: LENVATINIB
     Indication: Rhabdoid tumour
  12. AXITINIB [Concomitant]
     Active Substance: AXITINIB
     Indication: Renal cell carcinoma
     Route: 065
  13. AXITINIB [Concomitant]
     Active Substance: AXITINIB
     Indication: Rhabdoid tumour
  14. PEMBROLIZUMAB [Concomitant]
     Active Substance: PEMBROLIZUMAB
     Indication: Renal cell carcinoma
     Route: 065
  15. PEMBROLIZUMAB [Concomitant]
     Active Substance: PEMBROLIZUMAB
     Indication: Rhabdoid tumour

REACTIONS (4)
  - Immune-mediated lung disease [Unknown]
  - Dyspnoea [Unknown]
  - Off label use [Unknown]
  - Drug ineffective [Unknown]
